FAERS Safety Report 4549476-X (Version None)
Quarter: 2005Q1

REPORT INFORMATION
  Report Type: 
  Country: None (occurrence: None)
  Receive Date: 20050110
  Receipt Date: 20050110
  Transmission Date: 20050727
  Serious: Yes (Other)
  Sender: FDA-Public Use
  Company Number: None

PATIENT
  Sex: Female
  Weight: 95.2554 kg

DRUGS (6)
  1. CRESTOR [Suspect]
     Indication: HYPERLIPIDAEMIA
     Dosage: 10 MG QD
     Dates: start: 20040110, end: 20040625
  2. TOPROL-XL [Concomitant]
  3. LOTENSIN [Concomitant]
  4. ANTIOXIDANT [Concomitant]
  5. VITAMIN B COMPLEX CAP [Concomitant]
  6. PRILOSEC [Concomitant]

REACTIONS (2)
  - LYMPHADENOPATHY [None]
  - URINARY TRACT INFECTION [None]
